FAERS Safety Report 7673533 (Version 2)
Quarter: 2014Q1

REPORT INFORMATION
  Report Type: Report from Study
  Country: MX (occurrence: MX)
  Receive Date: 20101118
  Receipt Date: 20140304
  Transmission Date: 20141002
  Serious: Yes (Hospitalization, Other)
  Sender: FDA-Public Use
  Company Number: PHHY2010MX74432

PATIENT
  Age: 93 Year
  Sex: Female

DRUGS (5)
  1. CO-DIOVAN [Suspect]
     Indication: HYPERTENSION
     Dosage: 1 DF (320/25 MG), DAILY
     Route: 048
     Dates: end: 2013
  2. CO-DIOVAN [Suspect]
     Dosage: 0.5 DF (320/25 MG), DAILY
     Route: 048
     Dates: start: 2013
  3. CO-DIOVAN [Suspect]
     Dosage: 1 DF (320/25 MG), DAILY
     Route: 048
  4. ISOSORBIDE [Concomitant]
     Dosage: 2 DF, DAILY
  5. RANITIDIN [Concomitant]
     Dosage: UNK UKN, UNK

REACTIONS (11)
  - Gastrointestinal haemorrhage [Recovered/Resolved]
  - Gastric ulcer [Recovered/Resolved]
  - Fall [Recovered/Resolved with Sequelae]
  - Hip fracture [Recovered/Resolved with Sequelae]
  - Gait disturbance [Not Recovered/Not Resolved]
  - Gastritis [Not Recovered/Not Resolved]
  - Bone pain [Not Recovered/Not Resolved]
  - Arthralgia [Not Recovered/Not Resolved]
  - Anaemia [Recovered/Resolved]
  - Wrong technique in drug usage process [Recovered/Resolved]
  - Drug prescribing error [Unknown]
